FAERS Safety Report 8078191-3 (Version None)
Quarter: 2012Q1

REPORT INFORMATION
  Report Type: 
  Country: None (occurrence: None)
  Receive Date: 20120127
  Receipt Date: 20120124
  Transmission Date: 20120608
  Serious: Yes (Other)
  Sender: FDA-Public Use
  Company Number: US-ASTRAZENECA-2012SE04796

PATIENT
  Age: 70 Year
  Sex: Male
  Weight: 95.3 kg

DRUGS (4)
  1. BLOOD PRESSURE MEDICAITONS [Concomitant]
  2. NEXIUM [Suspect]
     Indication: GASTROOESOPHAGEAL REFLUX DISEASE
     Route: 048
  3. CHEMOTHERAPY MEDICATIONS [Concomitant]
  4. VICODIN [Concomitant]
     Indication: PAIN
     Dosage: TWO TIMES A DAY

REACTIONS (6)
  - METASTASES TO BONE [None]
  - BARRETT'S OESOPHAGUS [None]
  - PROSTATE CANCER [None]
  - GASTROOESOPHAGEAL REFLUX DISEASE [None]
  - PAIN [None]
  - OFF LABEL USE [None]
